FAERS Safety Report 24710900 (Version 3)
Quarter: 2024Q4

REPORT INFORMATION
  Report Type: Spontaneous
  Country: US (occurrence: US)
  Receive Date: 20241209
  Receipt Date: 20241220
  Transmission Date: 20250114
  Serious: Yes (Death, Other)
  Sender: TEVA
  Company Number: US-TEVA-VS-3272575

PATIENT
  Sex: Female

DRUGS (1)
  1. METHOTREXATE [Suspect]
     Active Substance: METHOTREXATE
     Indication: Polymyalgia rheumatica
     Route: 048

REACTIONS (3)
  - Toxicity to various agents [Fatal]
  - Pancytopenia [Unknown]
  - Mucocutaneous toxicity [Fatal]
